FAERS Safety Report 5084775-7 (Version None)
Quarter: 2006Q3

REPORT INFORMATION
  Report Type: 
  Country: None (occurrence: None)
  Receive Date: 20060815
  Receipt Date: 20060729
  Transmission Date: 20061208
  Serious: Yes (Hospitalization)
  Sender: FDA-Public Use
  Company Number: NL200608000281

PATIENT
  Age: 69 Year
  Sex: Female
  Weight: 38 kg

DRUGS (9)
  1. FORTEO [Suspect]
     Indication: OSTEOPOROSIS
     Dosage: 20 MG, SUBCUTANEOUS
     Route: 058
     Dates: end: 20050601
  2. MORPHINE [Concomitant]
  3. SERTETIDE ^GLAXO WELLCOME^ (FLUTICASONE PROPIONATE, SALMETEROL XINAFOA [Concomitant]
  4. OMEPRAZOLE [Concomitant]
  5. LORMETAZEPAM (LORMETAZEPAM) [Concomitant]
  6. ACETYLCYSTEINE [Concomitant]
  7. OXAZEPAM [Concomitant]
  8. ETALPHA (ALFACALCIDOL) [Concomitant]
  9. HYDROCHLOROTHIAZIDE [Concomitant]

REACTIONS (14)
  - BLOOD ALKALINE PHOSPHATASE INCREASED [None]
  - BLOOD PRESSURE SYSTOLIC INCREASED [None]
  - BLOOD SODIUM DECREASED [None]
  - BODY TEMPERATURE DECREASED [None]
  - CONSTIPATION [None]
  - GLYCOSYLATED HAEMOGLOBIN INCREASED [None]
  - HAEMOGLOBIN DECREASED [None]
  - INFLAMMATION [None]
  - KIDNEY SMALL [None]
  - METASTATIC BRONCHIAL CARCINOMA [None]
  - MICTURITION FREQUENCY DECREASED [None]
  - NIGHT SWEATS [None]
  - RED BLOOD CELL SEDIMENTATION RATE INCREASED [None]
  - WEIGHT DECREASED [None]
